FAERS Safety Report 6037483-X (Version None)
Quarter: 2009Q1

REPORT INFORMATION
  Report Type: 
  Country: None (occurrence: None)
  Receive Date: 20090114
  Receipt Date: 20090105
  Transmission Date: 20090719
  Serious: Yes (Hospitalization, Other)
  Sender: FDA-Public Use
  Company Number: US-ELI_LILLY_AND_COMPANY-US200805005721

PATIENT
  Sex: Male
  Weight: 95.238 kg

DRUGS (15)
  1. BYETTA [Suspect]
     Indication: TYPE 2 DIABETES MELLITUS
     Dosage: 5 UG, 2/D
     Route: 058
     Dates: start: 20061127, end: 20061201
  2. BYETTA [Suspect]
     Dosage: 10 MG, 2/D
     Route: 058
     Dates: start: 20061201, end: 20080625
  3. BYETTA [Suspect]
     Route: 058
     Dates: start: 20080521, end: 20080521
  4. GLIPIZIDE [Concomitant]
     Indication: DIABETES MELLITUS
     Dosage: 20 MG, 2/D
     Dates: end: 20080609
  5. GLIPIZIDE [Concomitant]
     Dosage: 10 MG, EACH MORNING
     Dates: start: 20080609
  6. GLIPIZIDE [Concomitant]
     Dosage: 20 MG, EACH EVENING
     Dates: start: 20080609
  7. ZOCOR [Concomitant]
     Indication: BLOOD CHOLESTEROL
     Dosage: 10 MG, EACH EVENING
  8. LYRICA [Concomitant]
     Indication: TRIGEMINAL NEURALGIA
     Dosage: 300 MG, 3/D
  9. BACLOFEN [Concomitant]
     Indication: TRIGEMINAL NEURALGIA
     Dosage: 10 MG, DAILY (1/D)
  10. FLOMAX [Concomitant]
     Dosage: 0.8 MG, DAILY (1/D)
  11. LISINOPRIL [Concomitant]
     Indication: BLOOD PRESSURE INCREASED
     Dosage: 10 MG, DAILY (1/D)
  12. LISINOPRIL [Concomitant]
     Dosage: 5 MG, DAILY (1/D)
  13. CIALIS [Concomitant]
     Dosage: 20 MG, DAILY (1/D)
  14. TETRACYCLINE [Concomitant]
     Indication: ACNE VARIOLIFORMIS
     Dosage: 500 MG, DAILY (1/D)
  15. ASPIRIN [Concomitant]
     Dosage: 81 MG, UNK

REACTIONS (5)
  - FALL [None]
  - HYPOGLYCAEMIA [None]
  - HYPOGLYCAEMIC UNCONSCIOUSNESS [None]
  - INCORRECT DOSE ADMINISTERED [None]
  - ROAD TRAFFIC ACCIDENT [None]
